FAERS Safety Report 15359155 (Version 5)
Quarter: 2024Q1

REPORT INFORMATION
  Report Type: Spontaneous
  Country: US (occurrence: US)
  Receive Date: 20180907
  Receipt Date: 20240306
  Transmission Date: 20240410
  Serious: Yes (Hospitalization, Other)
  Sender: FDA-Public Use
  Company Number: US-BIOGEN-2018BI00628460

PATIENT
  Age: 50 Year
  Sex: Female
  Weight: 53.118 kg

DRUGS (3)
  1. AVONEX [Suspect]
     Active Substance: INTERFERON BETA-1A
     Indication: Multiple sclerosis
     Route: 050
     Dates: start: 201312, end: 202308
  2. AVONEX [Suspect]
     Active Substance: INTERFERON BETA-1A
     Route: 050
     Dates: start: 2003, end: 2013
  3. AVONEX [Suspect]
     Active Substance: INTERFERON BETA-1A
     Route: 050

REACTIONS (4)
  - Thalamic stroke [Recovered/Resolved]
  - Encephalomalacia [Recovered/Resolved]
  - Gliosis [Recovered/Resolved]
  - Cerebral atrophy [Recovered/Resolved]

NARRATIVE: CASE EVENT DATE: 20180401
